FAERS Safety Report 16450536 (Version 1)
Quarter: 2019Q2

REPORT INFORMATION
  Report Type: Report from Study
  Country: US (occurrence: US)
  Receive Date: 20190619
  Receipt Date: 20190619
  Transmission Date: 20190711
  Serious: Yes (Other)
  Sender: FDA-Public Use
  Company Number: US-BRISTOL-MYERS SQUIBB COMPANY-BMS-2019-056235

PATIENT
  Sex: Female
  Weight: 79.83 kg

DRUGS (1)
  1. ABATACEPT [Suspect]
     Active Substance: ABATACEPT
     Indication: RHEUMATOID ARTHRITIS
     Dosage: UNK UNK, QWK
     Route: 058
     Dates: start: 201905

REACTIONS (6)
  - Injection site bruising [Unknown]
  - Device malfunction [Unknown]
  - Hypoacusis [Unknown]
  - Peripheral swelling [Unknown]
  - Ankle fracture [Unknown]
  - Pain [Unknown]
